FAERS Safety Report 12605094 (Version 1)
Quarter: 2016Q3

REPORT INFORMATION
  Report Type: Spontaneous
  Country: US (occurrence: US)
  Receive Date: 20160728
  Receipt Date: 20160728
  Transmission Date: 20161109
  Serious: No
  Sender: FDA-Public Use
  Company Number: US-BEH-2016071439

PATIENT
  Sex: Female
  Weight: 108.39 kg

DRUGS (2)
  1. HIZENTRA [Suspect]
     Active Substance: HUMAN IMMUNOGLOBULIN G
     Indication: IMMUNODEFICIENCY COMMON VARIABLE
     Dosage: 2 G/10 ML, QW
     Route: 058
     Dates: start: 20120726
  2. HIZENTRA [Suspect]
     Active Substance: HUMAN IMMUNOGLOBULIN G
     Dosage: 4 G/20 ML, QW
     Route: 058
     Dates: start: 20120726

REACTIONS (5)
  - Exposure during pregnancy [Unknown]
  - Infusion site reaction [Unknown]
  - Infusion site infection [Unknown]
  - Infusion site vesicles [Unknown]
  - Infusion site swelling [Unknown]
